FAERS Safety Report 4934313-1 (Version None)
Quarter: 2006Q1

REPORT INFORMATION
  Report Type: 
  Country: None (occurrence: None)
  Receive Date: 20060303
  Receipt Date: 20060217
  Transmission Date: 20060701
  Serious: Yes (Disabling)
  Sender: FDA-Public Use
  Company Number: 385761

PATIENT
  Age: 20 Year
  Sex: Male
  Weight: 78 kg

DRUGS (4)
  1. ACCUTANE [Suspect]
     Indication: ACNE CYSTIC
     Dosage: 40 MG 2 PER DAY ORAL
     Route: 048
     Dates: start: 20000816, end: 20011115
  2. KEFLEX [Concomitant]
  3. TAC 3 (TRIAMCINOLONE) [Concomitant]
  4. MONODOX [Concomitant]

REACTIONS (23)
  - ANAL FISSURE [None]
  - ARTHRALGIA [None]
  - BARRETT'S OESOPHAGUS [None]
  - COLITIS ULCERATIVE [None]
  - COLON INJURY [None]
  - CONSTIPATION [None]
  - CROHN'S DISEASE [None]
  - DRY SKIN [None]
  - FATIGUE [None]
  - GASTRIC HAEMORRHAGE [None]
  - GASTROINTESTINAL DISORDER [None]
  - GASTROOESOPHAGEAL REFLUX DISEASE [None]
  - HAEMATOMA [None]
  - INFLAMMATORY BOWEL DISEASE [None]
  - INTESTINAL HAEMORRHAGE [None]
  - IRRITABLE BOWEL SYNDROME [None]
  - NIGHT BLINDNESS [None]
  - OEDEMA PERIPHERAL [None]
  - PROCTITIS ULCERATIVE [None]
  - RECTAL HAEMORRHAGE [None]
  - SEBORRHOEA [None]
  - TESTICULAR PAIN [None]
  - VISUAL DISTURBANCE [None]
